FAERS Safety Report 4655145-8 (Version None)
Quarter: 2005Q2

REPORT INFORMATION
  Report Type: 
  Country: None (occurrence: None)
  Receive Date: 20050505
  Receipt Date: 20050428
  Transmission Date: 20051028
  Serious: No
  Sender: FDA-Public Use
  Company Number: 2005-127862-NL

PATIENT
  Age: 24 Month
  Sex: Male

DRUGS (2)
  1. VECURONIUM BROMIDE [Suspect]
     Indication: LIFE SUPPORT
     Route: 041
     Dates: start: 20050301, end: 20050401
  2. MIDAZOLAM [Concomitant]

REACTIONS (4)
  - ACIDOSIS [None]
  - BRONCHOSTENOSIS [None]
  - RESPIRATORY FAILURE [None]
  - RHABDOMYOLYSIS [None]
